FAERS Safety Report 8080821-7 (Version None)
Quarter: 2012Q1

REPORT INFORMATION
  Report Type: 
  Country: None (occurrence: None)
  Receive Date: 20120130
  Receipt Date: 20120116
  Transmission Date: 20120608
  Serious: Yes (Other)
  Sender: FDA-Public Use
  Company Number: US-ROCHE-1033421

PATIENT
  Age: 61 Year
  Sex: Male

DRUGS (4)
  1. METHYLPREDNISOLONE [Concomitant]
  2. DIPHENHYDRAMINE HCL [Concomitant]
  3. MABTHERA [Suspect]
     Indication: IMMUNOGLOBULIN G4 RELATED SCLEROSING DISEASE
  4. ACETAMINOPHEN [Concomitant]

REACTIONS (1)
  - HEPATITIS B [None]
